FAERS Safety Report 5816870-6 (Version None)
Quarter: 2008Q3

REPORT INFORMATION
  Report Type: 
  Country: None (occurrence: None)
  Receive Date: 20080721
  Receipt Date: 20080716
  Transmission Date: 20090109
  Serious: Yes (Hospitalization)
  Sender: FDA-Public Use
  Company Number: JP-MERCK-0807USA00729

PATIENT
  Age: 69 Year
  Sex: Female

DRUGS (5)
  1. ZETIA [Suspect]
     Indication: HYPERLIPIDAEMIA
     Route: 048
     Dates: start: 20080601, end: 20080617
  2. PITAVASTATIN CALCIUM [Concomitant]
     Route: 065
  3. CANDESARTAN CILEXETIL [Concomitant]
     Route: 065
  4. BENFOTIAMINE [Concomitant]
     Route: 065
  5. VOGLIBOSE [Concomitant]
     Route: 065
     Dates: end: 20080701

REACTIONS (1)
  - HEPATIC FUNCTION ABNORMAL [None]
